FAERS Safety Report 6169745-X (Version None)
Quarter: 2009Q2

REPORT INFORMATION
  Report Type: 
  Country: None (occurrence: None)
  Receive Date: 20090428
  Receipt Date: 20090415
  Transmission Date: 20091009
  Serious: Yes (Other)
  Sender: FDA-Public Use
  Company Number: CN-ROCHE-627364

PATIENT
  Age: 40 Year
  Sex: Male

DRUGS (1)
  1. PEG-INTERFERON ALFA 2A (RO 25-8310) [Suspect]
     Indication: HEPATITIS B
     Route: 058
     Dates: start: 20090314

REACTIONS (3)
  - HEPATIC CIRRHOSIS [None]
  - HEPATOMEGALY [None]
  - SPLENOMEGALY [None]
